FAERS Safety Report 13772591 (Version 2)
Quarter: 2017Q3

REPORT INFORMATION
  Report Type: Spontaneous
  Country: AR (occurrence: AR)
  Receive Date: 20170720
  Receipt Date: 20170801
  Transmission Date: 20171127
  Serious: Yes (Death, Other)
  Sender: FDA-Public Use
  Company Number: AR-BAYER-2017-134259

PATIENT
  Age: 55 Year
  Sex: Female

DRUGS (7)
  1. STIVARGA [Suspect]
     Active Substance: REGORAFENIB
     Indication: COLON CANCER
     Dosage: 160 MG, QD
  2. RITUXIMAB. [Concomitant]
     Active Substance: RITUXIMAB
  3. OXALIPLATIN. [Concomitant]
     Active Substance: OXALIPLATIN
  4. FLUOROURACIL. [Concomitant]
     Active Substance: FLUOROURACIL
  5. BEVACIZUMAB. [Concomitant]
     Active Substance: BEVACIZUMAB
  6. STIVARGA [Suspect]
     Active Substance: REGORAFENIB
     Indication: COLON CANCER
     Dosage: 120 MG, QD
  7. LEUCOVORIN [CALCIUM FOLINATE,FOLINIC ACID] [Concomitant]

REACTIONS (14)
  - Death [Fatal]
  - Metastases to peritoneum [Unknown]
  - Chest injury [Recovered/Resolved]
  - Erythema multiforme [Recovered/Resolved]
  - Odynophagia [Recovered/Resolved]
  - Leukopenia [Recovered/Resolved]
  - Rash maculo-papular [Recovered/Resolved]
  - Limb injury [Recovered/Resolved]
  - Face injury [Recovered/Resolved]
  - Immune thrombocytopenic purpura [Not Recovered/Not Resolved]
  - Night sweats [Recovered/Resolved]
  - Dry skin [Unknown]
  - Palmar-plantar erythrodysaesthesia syndrome [Recovered/Resolved]
  - Asthenia [Recovered/Resolved]
